FAERS Safety Report 11690904 (Version 1)
Quarter: 2015Q4

REPORT INFORMATION
  Report Type: Spontaneous
  Country: KW (occurrence: KW)
  Receive Date: 20151102
  Receipt Date: 20151102
  Transmission Date: 20160304
  Serious: Yes (Hospitalization, Other)
  Sender: FDA-Public Use
  Company Number: KW-EDENBRIDGE PHARMACEUTICALS, LLC-1043637

PATIENT
  Age: 57 Year
  Sex: Female

DRUGS (1)
  1. TINIDAZOLE. [Suspect]
     Active Substance: TINIDAZOLE
     Indication: DIARRHOEA HAEMORRHAGIC
     Route: 048

REACTIONS (1)
  - Pancreatitis acute [Recovering/Resolving]
